FAERS Safety Report 5043720-0 (Version None)
Quarter: 2006Q3

REPORT INFORMATION
  Report Type: 
  Country: None (occurrence: None)
  Receive Date: 20060706
  Receipt Date: 20060628
  Transmission Date: 20061208
  Serious: Yes (Other)
  Sender: FDA-Public Use
  Company Number: GB-JNJFOC-20060606472

PATIENT
  Age: 80 Year
  Sex: Female

DRUGS (2)
  1. DURAGESIC-50 [Suspect]
     Route: 062
  2. DURAGESIC-50 [Suspect]
     Indication: GASTROINTESTINAL CARCINOMA
     Route: 062

REACTIONS (2)
  - AGITATION [None]
  - PARANOIA [None]
